FAERS Safety Report 6678851-2 (Version None)
Quarter: 2010Q2

REPORT INFORMATION
  Report Type: 
  Country: None (occurrence: None)
  Receive Date: 20100413
  Receipt Date: 20100319
  Transmission Date: 20101027
  Serious: Yes (Hospitalization, Other)
  Sender: FDA-Public Use
  Company Number: US-BAYER-201020280GPV

PATIENT
  Age: 59 Year
  Sex: Male

DRUGS (3)
  1. FLUDARABINE [Suspect]
     Indication: ACUTE MYELOID LEUKAEMIA
     Dosage: DAY 1 TO 5 PER CYCLE, 2 CYCLES IN TOTAL
  2. IDARUBICIN HCL [Suspect]
     Indication: ACUTE MYELOID LEUKAEMIA
     Dosage: DAY 1 TO 5 PER CYCLE. 2 CYCLES IN TOTAL
  3. GEMTUZUMAB [Suspect]
     Indication: ACUTE MYELOID LEUKAEMIA
     Dosage: 1 DOSE ON DAY 8 PER CYCLE, 2 CYCLES IN TOTAL

REACTIONS (8)
  - CATHETER SITE ERYTHEMA [None]
  - EPISTAXIS [None]
  - FEBRILE NEUTROPENIA [None]
  - FUNGAL RHINITIS [None]
  - HERPES SIMPLEX [None]
  - MOUTH ULCERATION [None]
  - NASAL SEPTUM ULCERATION [None]
  - STAPHYLOCOCCAL BACTERAEMIA [None]
